FAERS Safety Report 23594298 (Version 1)
Quarter: 2024Q1

REPORT INFORMATION
  Report Type: Report from Study
  Country: GB (occurrence: GB)
  Receive Date: 20240305
  Receipt Date: 20240305
  Transmission Date: 20240409
  Serious: Yes (Other)
  Sender: FDA-Public Use
  Company Number: GB-SAMSUNG BIOEPIS-SB-2024-05997

PATIENT
  Sex: Female

DRUGS (1)
  1. IMRALDI [Suspect]
     Active Substance: ADALIMUMAB
     Indication: Crohn^s disease
     Dosage: IMRALDI, 40 MG/0.8 ML PFP SC
     Route: 058

REACTIONS (5)
  - Syncope [Unknown]
  - Headache [Unknown]
  - Rash macular [Unknown]
  - Fatigue [Unknown]
  - Head injury [Unknown]
